FAERS Safety Report 18901806 (Version 2)
Quarter: 2021Q1

REPORT INFORMATION
  Report Type: Spontaneous
  Country: AU (occurrence: AU)
  Receive Date: 20210217
  Receipt Date: 20210319
  Transmission Date: 20210420
  Serious: Yes (Other)
  Sender: FDA-Public Use
  Company Number: AU-SA-2021SA048625

PATIENT
  Age: 74 Year
  Sex: Female

DRUGS (2)
  1. DIABEX [Concomitant]
     Active Substance: METFORMIN HYDROCHLORIDE
     Indication: DIABETES MELLITUS
     Dosage: 4 DF, QD
  2. DAONIL [Suspect]
     Active Substance: GLYBURIDE
     Dosage: SHE IS NOT SURE IF IT^S 3MG OR 5MG BUT SHE IS TAKING 5MG DAONIL

REACTIONS (1)
  - Blindness [Unknown]
